FAERS Safety Report 14764393 (Version 1)
Quarter: 2018Q2

REPORT INFORMATION
  Report Type: Spontaneous
  Country: US (occurrence: US)
  Receive Date: 20180416
  Receipt Date: 20180416
  Transmission Date: 20180711
  Serious: Yes (Disabling)
  Sender: FDA-Public Use
  Company Number: US-009507513-1804USA003621

PATIENT
  Age: 27 Year
  Sex: Female
  Weight: 79.82 kg

DRUGS (2)
  1. NEXPLANON [Suspect]
     Active Substance: ETONOGESTREL
     Dosage: 1 IMPLANT, UNK; IN LEFT ARM
     Route: 059
     Dates: start: 20160617, end: 20180316
  2. NEXPLANON [Suspect]
     Active Substance: ETONOGESTREL
     Indication: CONTRACEPTION
     Dosage: 1 IMPLANT, UNK
     Route: 059
     Dates: end: 20160617

REACTIONS (7)
  - Complication associated with device [Unknown]
  - Pain in extremity [Unknown]
  - Implant site scar [Unknown]
  - Mood swings [Not Recovered/Not Resolved]
  - Mood swings [Unknown]
  - Hypoaesthesia [Unknown]
  - Paraesthesia [Unknown]

NARRATIVE: CASE EVENT DATE: 20170815
